FAERS Safety Report 15690295 (Version 1)
Quarter: 2018Q4

REPORT INFORMATION
  Report Type: Report from Study
  Country: US (occurrence: US)
  Receive Date: 20181205
  Receipt Date: 20181205
  Transmission Date: 20190205
  Serious: Yes (Other)
  Sender: FDA-Public Use
  Company Number: US-SAKK-2018SA314466AA

PATIENT
  Age: 64 Year
  Sex: Male

DRUGS (2)
  1. INSULIN GLARGINE [Suspect]
     Active Substance: INSULIN GLARGINE
     Indication: TYPE 2 DIABETES MELLITUS
     Dosage: 40 U
     Dates: start: 20181025
  2. INSULIN GLARGINE [Suspect]
     Active Substance: INSULIN GLARGINE
     Dosage: 42 U, HS

REACTIONS (10)
  - Injection site pain [Unknown]
  - Memory impairment [Not Recovered/Not Resolved]
  - Injection site discomfort [Unknown]
  - Continuous positive airway pressure [Unknown]
  - Injection site bruising [Unknown]
  - Hypotension [Not Recovered/Not Resolved]
  - Blood glucose fluctuation [Unknown]
  - Product storage error [Unknown]
  - Cataplexy [Not Recovered/Not Resolved]
  - Abdominal discomfort [Not Recovered/Not Resolved]

NARRATIVE: CASE EVENT DATE: 20181025
